FAERS Safety Report 8606401-X (Version None)
Quarter: 2012Q3

REPORT INFORMATION
  Report Type: 
  Country: None (occurrence: None)
  Receive Date: 20120820
  Receipt Date: 20120809
  Transmission Date: 20120928
  Serious: Yes (Life-Threatening, Hospitalization, Disabling)
  Sender: FDA-Public Use
  Company Number: GB-ROCHE-754202

PATIENT
  Age: 63 Year
  Sex: Female
  Weight: 100 kg

DRUGS (8)
  1. HERCEPTIN [Suspect]
     Indication: BREAST CANCER STAGE I
     Route: 042
  2. CYCLOPHOSPHAMIDE [Concomitant]
  3. FLUOROURACIL [Concomitant]
  4. DEXAMETHASONE [Concomitant]
  5. EPIRUBICIN [Concomitant]
  6. DOCETAXEL [Suspect]
     Indication: BREAST CANCER STAGE I
     Route: 042
     Dates: start: 20100430, end: 20100524
  7. TINZAPARIN [Concomitant]
  8. DOCETAXEL [Suspect]
     Dosage: DOSE REDUCED,THIRD DOSE NOT GIVEN.
     Route: 042

REACTIONS (6)
  - NEUTROPENIC SEPSIS [None]
  - MALAISE [None]
  - PAIN [None]
  - NECROTISING FASCIITIS [None]
  - MULTI-ORGAN FAILURE [None]
  - MYALGIA [None]
